FAERS Safety Report 8511836-X (Version None)
Quarter: 2012Q3

REPORT INFORMATION
  Report Type: 
  Country: None (occurrence: None)
  Receive Date: 20120716
  Receipt Date: 20120712
  Transmission Date: 20120928
  Serious: Yes (Other)
  Sender: FDA-Public Use
  Company Number: PHHY2012BR051326

PATIENT
  Age: 92 Year
  Sex: Female

DRUGS (4)
  1. TEGRETOL [Suspect]
     Indication: TRIGEMINAL NEURALGIA
     Dosage: 1 DF, DAILY
     Route: 048
  2. TEGRETOL [Suspect]
     Indication: PAIN
     Dosage: 10 ML, DAILY
     Route: 048
     Dates: start: 20120702
  3. TEGRETOL [Suspect]
     Dosage: 3 DF, DAILY
     Route: 048
  4. TEGRETOL [Suspect]
     Indication: TRIGEMINAL NEURALGIA
     Dosage: 1 DF, DAILY
     Route: 048

REACTIONS (7)
  - AGEUSIA [None]
  - DYSPHAGIA [None]
  - BLOOD PRESSURE ABNORMAL [None]
  - TRIGEMINAL NEURALGIA [None]
  - COUGH [None]
  - DEMENTIA ALZHEIMER'S TYPE [None]
  - VOMITING [None]
